FAERS Safety Report 9158934 (Version 1)
Quarter: 2013Q1

REPORT INFORMATION
  Report Type: Spontaneous
  Country: US (occurrence: None)
  Receive Date: 20130213
  Receipt Date: 20130213
  Transmission Date: 20140127
  Serious: Yes (Other)
  Sender: FDA-Public Use
  Company Number: GB-1196449

PATIENT
  Sex: Male

DRUGS (6)
  1. TRAVATAN [Suspect]
     Dosage: (OPHTHALMIC)
  2. BETAXOLOL HYDROCHLORIDE [Suspect]
     Dosage: (OPHTHALMIC)
  3. CONTIFLO [Suspect]
     Indication: BENIGN PROSTATIC HYPERPLASIA
     Route: 048
  4. DORZOLAMIDE [Suspect]
     Dosage: (OPHTHALMIC)
  5. SINEMET [Suspect]
  6. AZILECT [Suspect]

REACTIONS (3)
  - Vision blurred [None]
  - Impaired driving ability [None]
  - Drug hypersensitivity [None]
